FAERS Safety Report 4293925-1 (Version None)
Quarter: 2004Q1

REPORT INFORMATION
  Report Type: 
  Country: None (occurrence: None)
  Receive Date: 20040212
  Receipt Date: 20040212
  Transmission Date: 20041129
  Serious: Yes (Hospitalization)
  Sender: FDA-Public Use
  Company Number: None

PATIENT
  Age: 70 Year
  Sex: Female
  Weight: 66.2 kg

DRUGS (9)
  1. WARFARIN SODIUM [Suspect]
     Indication: MITRAL VALVE REPLACEMENT
  2. VIT C [Concomitant]
  3. ZANTAC [Concomitant]
  4. DEMADEX [Concomitant]
  5. INSULIN [Concomitant]
  6. BETAPACE [Concomitant]
  7. CARDIZEM CD [Concomitant]
  8. FLOMAX [Concomitant]
  9. WARFARIN SODIUM [Concomitant]

REACTIONS (4)
  - ASTHENIA [None]
  - FAECES DISCOLOURED [None]
  - HAEMORRHAGE [None]
  - INTERNATIONAL NORMALISED RATIO INCREASED [None]
